FAERS Safety Report 9198369 (Version 2)
Quarter: 2013Q2

REPORT INFORMATION
  Report Type: Spontaneous
  Country: GB (occurrence: GB)
  Receive Date: 20130329
  Receipt Date: 20130520
  Transmission Date: 20140414
  Serious: Yes (Hospitalization)
  Sender: FDA-Public Use
  Company Number: GB-AMGEN-GBRSP2013020982

PATIENT
  Age: 80 Year
  Sex: Female

DRUGS (10)
  1. PROLIA [Suspect]
     Indication: PRODUCT USED FOR UNKNOWN INDICATION
     Dosage: 60 MG, Q6MO
     Route: 058
     Dates: start: 20101222
  2. ISOSORBIDE MONONITRATE [Concomitant]
  3. BISOPROLOL [Concomitant]
  4. ASPIRIN (E.C.) [Concomitant]
  5. OMEPRAZOLE [Concomitant]
  6. HYOSCINE BUTYLBROMIDE [Concomitant]
  7. RAMIPRIL [Concomitant]
  8. PARACETAMOL [Concomitant]
  9. LOPERAMIDE [Concomitant]
  10. ENSURE PLUS [Concomitant]

REACTIONS (2)
  - Cerebrovascular accident [Recovered/Resolved]
  - Vascular dementia [Recovered/Resolved]
